FAERS Safety Report 7728286-6 (Version None)
Quarter: 2011Q3

REPORT INFORMATION
  Report Type: 
  Country: None (occurrence: None)
  Receive Date: 20110905
  Receipt Date: 20110829
  Transmission Date: 20111222
  Serious: Yes (Other)
  Sender: FDA-Public Use
  Company Number: PHEH2011US02876

PATIENT
  Sex: Female
  Weight: 81.633 kg

DRUGS (1)
  1. RECLAST [Suspect]
     Indication: OSTEOPOROSIS
     Dosage: 5 MG, ANNUALLY
     Route: 042
     Dates: start: 20110803

REACTIONS (7)
  - VOMITING [None]
  - PYREXIA [None]
  - DEHYDRATION [None]
  - HEART RATE INCREASED [None]
  - DIARRHOEA [None]
  - MUSCULAR WEAKNESS [None]
  - INFLUENZA LIKE ILLNESS [None]
